FAERS Safety Report 4755403-2 (Version None)
Quarter: 2005Q3

REPORT INFORMATION
  Report Type: 
  Country: None (occurrence: None)
  Receive Date: 20050826
  Receipt Date: 20050224
  Transmission Date: 20060218
  Serious: Yes (Death)
  Sender: FDA-Public Use
  Company Number: USA-2003-0006530

PATIENT
  Age: 40 Year
  Sex: Male

DRUGS (16)
  1. OXYCONTIN [Suspect]
     Indication: PAIN
     Dosage: 20 MG, Q12H
  2. REGLAN [Suspect]
     Dosage: 10 MG, QID PRN
  3. LEXAPRO [Suspect]
     Indication: DEPRESSION
     Dosage: 10, DAILY
  4. PERCOCET [Suspect]
     Indication: PAIN
     Dosage: 5 MG, Q4H PRN
  5. ZANTAC [Suspect]
     Dosage: 300 MG, BID PRN
  6. ZANAFLEX [Suspect]
  7. FLAGYL [Suspect]
     Indication: INFECTION
     Dosage: 500 MG, BID
  8. CYCLOBENZAPRINE HCL [Concomitant]
  9. AMOXICILLIN [Concomitant]
  10. WARFARIN [Concomitant]
  11. METHADONE HCL [Concomitant]
  12. AMITRIPTYLINE HCL [Concomitant]
  13. CELEBREX [Concomitant]
  14. ZOLOFT [Concomitant]
  15. CONCERTA [Concomitant]
  16. MAVIK [Concomitant]

REACTIONS (2)
  - ACCIDENTAL OVERDOSE [None]
  - MULTIPLE DRUG OVERDOSE [None]
